FAERS Safety Report 15528448 (Version 3)
Quarter: 2021Q1

REPORT INFORMATION
  Report Type: Report from Study
  Country: US (occurrence: US)
  Receive Date: 20181018
  Receipt Date: 20210320
  Transmission Date: 20210419
  Serious: Yes (Other)
  Sender: FDA-Public Use
  Company Number: US-AMGEN-USASL2018135492

PATIENT
  Age: 71 Year
  Sex: Male

DRUGS (3)
  1. REPATHA [Suspect]
     Active Substance: EVOLOCUMAB
     Indication: HYPERCHOLESTEROLAEMIA
     Dosage: 140 MG, Q2WK
     Route: 065
     Dates: start: 20181110
  2. REPATHA [Suspect]
     Active Substance: EVOLOCUMAB
     Indication: ARTERIOSCLEROSIS CORONARY ARTERY
  3. REPATHA [Suspect]
     Active Substance: EVOLOCUMAB
     Indication: LOW DENSITY LIPOPROTEIN INCREASED
     Dosage: 140 MG, Q2WK
     Route: 065

REACTIONS (10)
  - Rash [Recovered/Resolved]
  - Fatigue [Recovered/Resolved]
  - Skin ulcer [Recovered/Resolved]
  - Rhinorrhoea [Recovered/Resolved]
  - Pain [Unknown]
  - Headache [Recovered/Resolved]
  - Injection site bruising [Unknown]
  - Energy increased [Unknown]
  - Back pain [Unknown]
  - Blood glucose increased [Unknown]
